FAERS Safety Report 7861249-9 (Version None)
Quarter: 2011Q4

REPORT INFORMATION
  Report Type: 
  Country: None (occurrence: None)
  Receive Date: 20111027
  Receipt Date: 20111021
  Transmission Date: 20120403
  Serious: Yes (Other)
  Sender: FDA-Public Use
  Company Number: SE-ABBOTT-11P-150-0714599-00

PATIENT
  Sex: Female

DRUGS (1)
  1. VALPROIC ACID [Suspect]
     Indication: EPILEPSY

REACTIONS (7)
  - DEMENTIA [None]
  - MOTOR DYSFUNCTION [None]
  - APHASIA [None]
  - COGNITIVE DISORDER [None]
  - SPEECH DISORDER [None]
  - URINARY TRACT INFECTION [None]
  - DYSPHAGIA [None]
